FAERS Safety Report 11102545 (Version 1)
Quarter: 2015Q2

REPORT INFORMATION
  Report Type: Spontaneous
  Country: US (occurrence: None)
  Receive Date: 20150508
  Receipt Date: 20150508
  Transmission Date: 20150821
  Serious: Yes (Life-Threatening, Hospitalization)
  Sender: FDA-Public Use
  Company Number: None

PATIENT
  Age: 84 Year
  Sex: Male
  Weight: 106 kg

DRUGS (9)
  1. LIPITOR [Concomitant]
     Active Substance: ATORVASTATIN CALCIUM
  2. APIXABEN [Concomitant]
  3. LISINOPRIL. [Concomitant]
     Active Substance: LISINOPRIL
  4. DETROL [Concomitant]
     Active Substance: TOLTERODINE TARTRATE
  5. METFORMIN [Concomitant]
     Active Substance: METFORMIN HYDROCHLORIDE
  6. DEMADEX [Concomitant]
     Active Substance: TORSEMIDE
  7. COREG [Concomitant]
     Active Substance: CARVEDILOL
  8. ASPIRIN. [Concomitant]
     Active Substance: ASPIRIN
  9. ELIQUIS [Suspect]
     Active Substance: APIXABAN
     Indication: ATRIAL FLUTTER
     Dosage: 1 TABLET, BID, ORAL
     Route: 048
     Dates: start: 20141114, end: 20150428

REACTIONS (4)
  - Rectal haemorrhage [None]
  - Melaena [None]
  - Hypotension [None]
  - Duodenal ulcer [None]

NARRATIVE: CASE EVENT DATE: 20150428
